FAERS Safety Report 17087048 (Version 1)
Quarter: 2019Q4

REPORT INFORMATION
  Report Type: Spontaneous
  Country: US (occurrence: US)
  Receive Date: 20191128
  Receipt Date: 20191128
  Transmission Date: 20200122
  Serious: No
  Sender: FDA-Public Use
  Company Number: US-HIKMA PHARMACEUTICALS USA INC.-US-H14001-19-05535

PATIENT
  Sex: Female

DRUGS (3)
  1. ETHACRYNIC ACID. [Suspect]
     Active Substance: ETHACRYNIC ACID
     Indication: PRODUCT USED FOR UNKNOWN INDICATION
     Dosage: TAKING 1/2 TABLET
     Route: 065
  2. ETHACRYNIC ACID. [Suspect]
     Active Substance: ETHACRYNIC ACID
     Dosage: TAKING 1/2 TABLET
     Route: 065
  3. ETHACRYNIC ACID. [Suspect]
     Active Substance: ETHACRYNIC ACID
     Dosage: TAKING 1/2 TABLET
     Route: 065

REACTIONS (1)
  - Product administration error [Unknown]
